FAERS Safety Report 10674426 (Version 1)
Quarter: 2014Q4

REPORT INFORMATION
  Report Type: Spontaneous
  Country: FR (occurrence: None)
  Receive Date: 20141222
  Receipt Date: 20141222
  Transmission Date: 20150529
  Serious: Yes (Hospitalization)
  Sender: FDA-Public Use
  Company Number: NSR_01735_2014

PATIENT
  Age: 63 Year
  Sex: Male

DRUGS (2)
  1. METFORMIN [Concomitant]
     Active Substance: METFORMIN HYDROCHLORIDE
  2. BACLOFEN. [Suspect]
     Active Substance: BACLOFEN
     Indication: ALCOHOL USE
     Route: 048

REACTIONS (9)
  - Drug withdrawal syndrome [None]
  - Diabetes mellitus [None]
  - Off label use [None]
  - Confusional state [None]
  - Dehydration [None]
  - Agitation [None]
  - Vomiting [None]
  - Alcohol withdrawal syndrome [None]
  - Hyperthermia [None]
